FAERS Safety Report 5339000-6 (Version None)
Quarter: 2007Q2

REPORT INFORMATION
  Report Type: 
  Country: None (occurrence: None)
  Receive Date: 20070403
  Receipt Date: 20060815
  Transmission Date: 20071010
  Serious: Yes (Disabling, Other)
  Sender: FDA-Public Use
  Company Number: WAES 0608USA03639

PATIENT
  Age: 55 Year
  Sex: Female

DRUGS (6)
  1. CANCIDAS [Suspect]
     Indication: FUNGAL INFECTION
     Dosage: 50 MG/DAILY/IV
     Route: 042
     Dates: start: 20060809
  2. CIPRO [Concomitant]
  3. KEPPRA [Concomitant]
  4. CLONAZEPAM [Concomitant]
  5. MEROPENEM [Concomitant]
  6. METRONIDAZOLE [Concomitant]

REACTIONS (1)
  - LIVER FUNCTION TEST ABNORMAL [None]
